FAERS Safety Report 26131467 (Version 1)
Quarter: 2025Q4

REPORT INFORMATION
  Report Type: Spontaneous
  Country: US (occurrence: None)
  Receive Date: 20251205
  Receipt Date: 20251205
  Transmission Date: 20260117
  Serious: No
  Sender: FDA-CTU
  Company Number: None

PATIENT
  Sex: Female

DRUGS (3)
  1. DASATINIB [Suspect]
     Active Substance: DASATINIB
     Indication: Chronic myeloid leukaemia
     Dosage: FREQUENCY : DAILY;
     Route: 048
  2. DASATINIB [Suspect]
     Active Substance: DASATINIB
     Indication: Philadelphia chromosome positive
  3. SPRYCEL [Concomitant]
     Active Substance: DASATINIB

REACTIONS (5)
  - Rash [None]
  - Rash [None]
  - Skin texture abnormal [None]
  - Alopecia [None]
  - Necrotising fasciitis [None]
